FAERS Safety Report 19958529 (Version 1)
Quarter: 2021Q4

REPORT INFORMATION
  Report Type: Spontaneous
  Country: JP (occurrence: JP)
  Receive Date: 20211015
  Receipt Date: 20211015
  Transmission Date: 20220303
  Serious: Yes (Life-Threatening, Other)
  Sender: FDA-Public Use
  Company Number: JP-MEITHEAL-2021MPLIT00058

PATIENT
  Age: 60 Year
  Sex: Male

DRUGS (2)
  1. GEMCITABINE [Suspect]
     Active Substance: GEMCITABINE
     Indication: Adenocarcinoma pancreas
     Dosage: ON DAYS 1 AND 8, EVERY 3 WEEKS
     Route: 042
  2. GIMERACIL\OTERACIL\TEGAFUR [Suspect]
     Active Substance: GIMERACIL\OTERACIL\TEGAFUR
     Indication: Adenocarcinoma pancreas
     Dosage: TWICE A DAY FOR 14 DAYS FOLLOWED BY A 7-DAY REST, EVERY 3 WEEK
     Route: 048

REACTIONS (2)
  - Enteritis necroticans [Unknown]
  - Pneumoperitoneum [Unknown]
